FAERS Safety Report 5458123-4 (Version None)
Quarter: 2007Q3

REPORT INFORMATION
  Report Type: 
  Country: None (occurrence: None)
  Receive Date: 20070919
  Receipt Date: 20070907
  Transmission Date: 20080115
  Serious: Yes (Other)
  Sender: FDA-Public Use
  Company Number: HQWYE067407SEP07

PATIENT
  Age: 23 Year
  Sex: Female

DRUGS (1)
  1. TRIQUILAR-28 [Suspect]
     Dosage: UNKNOWN
     Route: 048
     Dates: start: 20070101, end: 20070707

REACTIONS (6)
  - DRUG ERUPTION [None]
  - EYE SWELLING [None]
  - HEADACHE [None]
  - METRORRHAGIA [None]
  - PNEUMONIA [None]
  - SWELLING FACE [None]
